FAERS Safety Report 19360693 (Version 2)
Quarter: 2021Q2

REPORT INFORMATION
  Report Type: Spontaneous
  Country: CL (occurrence: CL)
  Receive Date: 20210602
  Receipt Date: 20210618
  Transmission Date: 20210717
  Serious: No
  Sender: FDA-Public Use
  Company Number: CL-PFIZER INC-2021600279

PATIENT
  Sex: Female

DRUGS (1)
  1. SAYANA PRESS [Suspect]
     Active Substance: MEDROXYPROGESTERONE\MEDROXYPROGESTERONE ACETATE
     Dosage: UNK

REACTIONS (3)
  - Incorrect dose administered by device [Unknown]
  - Device delivery system issue [Unknown]
  - Drug dose omission by device [Unknown]
